FAERS Safety Report 13602672 (Version 4)
Quarter: 2018Q1

REPORT INFORMATION
  Report Type: Spontaneous
  Country: CA (occurrence: CA)
  Receive Date: 20170601
  Receipt Date: 20180313
  Transmission Date: 20180508
  Serious: Yes (Other)
  Sender: FDA-Public Use
  Company Number: CA-PFIZER INC-2017241768

PATIENT
  Sex: Male

DRUGS (14)
  1. ZOSTAVAX [Suspect]
     Active Substance: VARICELLA-ZOSTER VIRUS STRAIN OKA/MERCK LIVE ANTIGEN
     Dosage: UNK
     Route: 058
  2. ORENCIA [Suspect]
     Active Substance: ABATACEPT
     Dosage: UNK
     Route: 065
  3. RITUXAN [Suspect]
     Active Substance: RITUXIMAB
     Dosage: UNK
     Route: 042
  4. DICLOFENAC [Concomitant]
     Active Substance: DICLOFENAC
     Dosage: 100 MG, UNK
     Route: 058
  5. CORTISONE [Concomitant]
     Active Substance: CORTISONE\HYDROCORTISONE
     Dosage: UNK
     Route: 058
  6. XELJANZ [Concomitant]
     Active Substance: TOFACITINIB CITRATE
     Indication: RHEUMATOID ARTHRITIS
     Dosage: 5 MG, BID (10 MG)
     Route: 048
  7. HUMIRA [Suspect]
     Active Substance: ADALIMUMAB
     Dosage: 40 MG, UNK
     Route: 058
  8. APO-LEFLUNOMIDE [Suspect]
     Active Substance: LEFLUNOMIDE
     Dosage: UNK
     Route: 065
  9. REMICADE [Suspect]
     Active Substance: INFLIXIMAB
     Dosage: UNK
     Route: 042
  10. METHOTREXATE SODIUM. [Suspect]
     Active Substance: METHOTREXATE SODIUM
     Dosage: UNK
     Route: 065
  11. APO HYDROXYQUINE [Suspect]
     Active Substance: HYDROXYCHLOROQUINE SULFATE
     Dosage: UNK
     Route: 065
  12. XELJANZ [Concomitant]
     Active Substance: TOFACITINIB CITRATE
     Dosage: 5 MG, BID
  13. SULFASALAZINE. [Suspect]
     Active Substance: SULFASALAZINE
     Dosage: 500 MG, UNK
     Route: 065
  14. ENBREL [Suspect]
     Active Substance: ETANERCEPT
     Dosage: UNK
     Route: 065

REACTIONS (7)
  - Neoplasm malignant [Unknown]
  - Tooth loss [Unknown]
  - Alopecia [Unknown]
  - Drug ineffective [Unknown]
  - Lymphoma [Unknown]
  - Drug intolerance [Unknown]
  - Onychoclasis [Unknown]
